FAERS Safety Report 11653130 (Version 1)
Quarter: 2015Q4

REPORT INFORMATION
  Report Type: Spontaneous
  Country: US (occurrence: None)
  Receive Date: 20151022
  Receipt Date: 20151022
  Transmission Date: 20160304
  Serious: Yes (Life-Threatening, Disabling)
  Sender: FDA-Public Use
  Company Number: None

PATIENT
  Age: 43 Year
  Sex: Male
  Weight: 58.97 kg

DRUGS (7)
  1. DESENEX NOS [Suspect]
     Active Substance: CLOTRIMAZOLE OR MICONAZOLE NITRATE
     Indication: DISEASE RECURRENCE
     Dosage: A FEW WEEKS
  2. VITAMINS [Concomitant]
     Active Substance: VITAMINS
  3. DESENEX NOS [Suspect]
     Active Substance: CLOTRIMAZOLE OR MICONAZOLE NITRATE
     Indication: STAPHYLOCOCCAL INFECTION
     Dosage: A FEW WEEKS
  4. DESENEX NOS [Suspect]
     Active Substance: CLOTRIMAZOLE OR MICONAZOLE NITRATE
     Indication: TINEA PEDIS
     Dosage: A FEW WEEKS
  5. ELTROXIN [Concomitant]
     Active Substance: LEVOTHYROXINE
  6. PANCREATIC ENZYMES [Concomitant]
     Active Substance: UNSPECIFIED INGREDIENT
  7. RABIES SHOT [Concomitant]

REACTIONS (6)
  - Muscle disorder [None]
  - Headache [None]
  - Exposure via ingestion [None]
  - Fall [None]
  - Memory impairment [None]
  - Intelligence test abnormal [None]

NARRATIVE: CASE EVENT DATE: 19820604
